FAERS Safety Report 25964647 (Version 1)
Quarter: 2025Q4

REPORT INFORMATION
  Report Type: Spontaneous
  Country: US (occurrence: US)
  Receive Date: 20251027
  Receipt Date: 20251027
  Transmission Date: 20260118
  Serious: No
  Sender: PFIZER
  Company Number: US-PFIZER INC-PV202500126643

PATIENT
  Age: 48 Year
  Sex: Female

DRUGS (3)
  1. XELJANZ XR [Suspect]
     Active Substance: TOFACITINIB CITRATE
     Indication: Rheumatoid arthritis
     Dosage: 11 MG, DAILY
     Route: 048
     Dates: start: 20251014
  2. RINVOQ [Concomitant]
     Active Substance: UPADACITINIB
  3. RASUVO [Concomitant]
     Active Substance: METHOTREXATE SODIUM

REACTIONS (1)
  - Insomnia [Not Recovered/Not Resolved]
